FAERS Safety Report 7499228-6 (Version None)
Quarter: 2011Q2

REPORT INFORMATION
  Report Type: 
  Country: None (occurrence: None)
  Receive Date: 20110524
  Receipt Date: 20110518
  Transmission Date: 20111010
  Serious: Yes (Other)
  Sender: FDA-Public Use
  Company Number: CA-JNJFOC-20110311797

PATIENT
  Age: 60 Year
  Sex: Male
  Weight: 86.18 kg

DRUGS (3)
  1. SODIUM FLUORIDE F 18 [Suspect]
     Indication: DENTAL CARE
     Route: 048
     Dates: start: 20110320
  2. LIPITOR [Concomitant]
     Indication: BLOOD CHOLESTEROL
     Route: 048
  3. PULMICORT [Concomitant]
     Indication: ASTHMA
     Route: 065

REACTIONS (5)
  - GINGIVAL BLEEDING [None]
  - STOMATITIS [None]
  - PRODUCT QUALITY ISSUE [None]
  - GINGIVAL PAIN [None]
  - ORAL DISCOMFORT [None]
